FAERS Safety Report 11254333 (Version 2)
Quarter: 2015Q3

REPORT INFORMATION
  Report Type: Spontaneous
  Country: ES (occurrence: ES)
  Receive Date: 20150709
  Receipt Date: 20150715
  Transmission Date: 20151125
  Serious: Yes (Hospitalization)
  Sender: FDA-Public Use
  Company Number: ES-JNJFOC-20150701243

PATIENT
  Sex: Male

DRUGS (3)
  1. XEPLION [Suspect]
     Active Substance: PALIPERIDONE PALMITATE
     Indication: DELIRIUM
     Route: 030
     Dates: start: 2015, end: 2015
  2. XEPLION [Suspect]
     Active Substance: PALIPERIDONE PALMITATE
     Indication: DELIRIUM
     Route: 030
     Dates: start: 20141012
  3. XEPLION [Suspect]
     Active Substance: PALIPERIDONE PALMITATE
     Indication: DELIRIUM
     Route: 030
     Dates: start: 2015, end: 201506

REACTIONS (17)
  - Product use issue [Unknown]
  - Haemorrhage [Unknown]
  - Accident [Unknown]
  - Pneumonia [Unknown]
  - Swelling face [Unknown]
  - Muscle atrophy [Unknown]
  - Drooling [Unknown]
  - Fatigue [Recovering/Resolving]
  - Speech disorder [Unknown]
  - Mobility decreased [Unknown]
  - Dysuria [Unknown]
  - Dysphagia [Unknown]
  - General physical health deterioration [Unknown]
  - Depressed mood [Recovering/Resolving]
  - Confusional state [Unknown]
  - Fall [Unknown]
  - Blunted affect [Unknown]

NARRATIVE: CASE EVENT DATE: 2014
